FAERS Safety Report 8094471-X (Version None)
Quarter: 2011Q4

REPORT INFORMATION
  Report Type: 
  Country: None (occurrence: None)
  Receive Date: 20111222
  Receipt Date: 20110923
  Transmission Date: 20120403
  Serious: Yes (Hospitalization)
  Sender: FDA-Public Use
  Company Number: UTC-010453

PATIENT
  Age: 66 Year
  Sex: Male
  Weight: 125 kg

DRUGS (6)
  1. VIAGRA [Concomitant]
  2. COUMADIN [Concomitant]
  3. OXYGEN (OXYGEN) [Concomitant]
  4. LETAIRIS [Concomitant]
  5. DIURETICS (DIURETICS) [Concomitant]
  6. TYVASO [Suspect]
     Indication: PULMONARY ARTERIAL HYPERTENSION
     Dosage: 72 MCG  (18 MCG, 4 IN 1 D), INHALATION,  48  MCG  (12 MCG, 4 IN 1 D), INHALATION
     Route: 055
     Dates: start: 20110915

REACTIONS (2)
  - DYSPNOEA [None]
  - FLUID RETENTION [None]
